FAERS Safety Report 11088024 (Version 1)
Quarter: 2015Q2

REPORT INFORMATION
  Report Type: Spontaneous
  Country: US (occurrence: None)
  Receive Date: 20150501
  Receipt Date: 20150501
  Transmission Date: 20150821
  Serious: Yes (Hospitalization)
  Sender: FDA-Public Use
  Company Number: None

PATIENT
  Age: 67 Year
  Sex: Male
  Weight: 116.8 kg

DRUGS (1)
  1. BEVACIZUMAB (RHUMAB VEGF) [Suspect]
     Active Substance: BEVACIZUMAB
     Dates: end: 20140519

REACTIONS (4)
  - Cholecystitis acute [None]
  - Septic shock [None]
  - Lobar pneumonia [None]
  - Pneumonia [None]

NARRATIVE: CASE EVENT DATE: 20140523
